FAERS Safety Report 6442263-7 (Version None)
Quarter: 2009Q4

REPORT INFORMATION
  Report Type: 
  Country: None (occurrence: None)
  Receive Date: 20091112
  Receipt Date: 20091103
  Transmission Date: 20100525
  Serious: Yes (Hospitalization)
  Sender: FDA-Public Use
  Company Number: ADR50062009

PATIENT
  Age: 52 Year
  Sex: Male

DRUGS (16)
  1. RISPERIDONE [Suspect]
     Indication: PSYCHOTIC DISORDER
     Dosage: ORAL
     Route: 048
  2. CITALOPRAM HYDROBROMIDE [Concomitant]
  3. ASPIRIN [Concomitant]
  4. ATENOLOL [Concomitant]
  5. BISOPROLOL [Concomitant]
  6. CLOZAPINE [Concomitant]
  7. DIAZEPAM [Concomitant]
  8. DOXAZOSIN [Concomitant]
  9. IBUPROFEN [Concomitant]
  10. LACTULOSE [Concomitant]
  11. OMEPRAZOLE [Concomitant]
  12. PIRENZAPINE [Concomitant]
  13. RAMIPRIL [Concomitant]
  14. SENNA [Concomitant]
  15. SIMVASTATIN [Concomitant]
  16. VALPROATE SODIUM [Concomitant]

REACTIONS (5)
  - CONSTIPATION [None]
  - FALL [None]
  - HYPONATRAEMIA [None]
  - MENTAL DISORDER [None]
  - SALIVARY HYPERSECRETION [None]
